FAERS Safety Report 8257406-2 (Version None)
Quarter: 2012Q2

REPORT INFORMATION
  Report Type: 
  Country: None (occurrence: None)
  Receive Date: 20120403
  Receipt Date: 20120322
  Transmission Date: 20120825
  Serious: Yes (Hospitalization, Other)
  Sender: FDA-Public Use
  Company Number: DE-ABBOTT-12P-062-0906169-00

PATIENT
  Sex: Male

DRUGS (6)
  1. CALCIUM CARBONATE [Concomitant]
     Indication: PRODUCT USED FOR UNKNOWN INDICATION
  2. ALLOPURINOL [Concomitant]
     Indication: GOUT
     Dosage: DAILY DOSE: 300MG
     Route: 048
  3. TETRAZEPAM [Concomitant]
     Indication: PRODUCT USED FOR UNKNOWN INDICATION
     Dosage: 0-0-1 PRN
     Route: 048
  4. LYRICA [Concomitant]
     Indication: PAIN
     Route: 048
     Dates: end: 20110801
  5. ENANTONE MONATSDEPOT [Suspect]
     Indication: PARAPHILIA
     Route: 058
     Dates: start: 20020101
  6. IBUPROFEN [Concomitant]
     Indication: PRODUCT USED FOR UNKNOWN INDICATION
     Dosage: UP TO 1200MG/DAY PRN
     Route: 048

REACTIONS (3)
  - INTERVERTEBRAL DISC PROTRUSION [None]
  - OFF LABEL USE [None]
  - OSTEOPENIA [None]
